FAERS Safety Report 17135796 (Version 4)
Quarter: 2021Q4

REPORT INFORMATION
  Report Type: Spontaneous
  Country: JP (occurrence: JP)
  Receive Date: 20191210
  Receipt Date: 20211208
  Transmission Date: 20220303
  Serious: No
  Sender: FDA-Public Use
  Company Number: JP-BEH-2019110348

PATIENT
  Age: 44 Year
  Sex: Female
  Weight: 77 kg

DRUGS (6)
  1. HIZENTRA [Suspect]
     Active Substance: HUMAN IMMUNOGLOBULIN G
     Indication: Chronic inflammatory demyelinating polyradiculoneuropathy
     Dosage: 32 GRAM, QW
     Route: 058
     Dates: start: 20190808
  2. HIZENTRA [Suspect]
     Active Substance: HUMAN IMMUNOGLOBULIN G
     Indication: Chronic inflammatory demyelinating polyradiculoneuropathy
     Dosage: 32 GRAM , QW
     Route: 058
     Dates: start: 20190919
  3. HIZENTRA [Suspect]
     Active Substance: HUMAN IMMUNOGLOBULIN G
     Dosage: 160 MILLILITER, QD
     Route: 058
     Dates: start: 20190808, end: 20190808
  4. HIZENTRA [Suspect]
     Active Substance: HUMAN IMMUNOGLOBULIN G
     Dosage: 160 MILLILITER, QW
     Route: 058
     Dates: start: 20190816, end: 20190912
  5. HIZENTRA [Suspect]
     Active Substance: HUMAN IMMUNOGLOBULIN G
     Dosage: 32 GRAM (160 ML)
     Route: 058
     Dates: start: 20190919, end: 20190919
  6. HIZENTRA [Suspect]
     Active Substance: HUMAN IMMUNOGLOBULIN G
     Dosage: 160 MILLILITER
     Route: 058
     Dates: start: 20190926, end: 20200206

REACTIONS (1)
  - Injection site erythema [Recovered/Resolved]

NARRATIVE: CASE EVENT DATE: 20190919
